FAERS Safety Report 21649848 (Version 1)
Quarter: 2022Q4

REPORT INFORMATION
  Report Type: Spontaneous
  Country: IT (occurrence: IT)
  Receive Date: 20221128
  Receipt Date: 20221128
  Transmission Date: 20230113
  Serious: Yes (Other)
  Sender: FDA-Public Use
  Company Number: None

PATIENT
  Age: 51 Year
  Sex: Male
  Weight: 95 kg

DRUGS (2)
  1. LANSOPRAZOLE [Suspect]
     Active Substance: LANSOPRAZOLE
     Indication: Antacid therapy
     Dosage: 1 CAPSULE OF 15 MG  , LANSOPRAZOLO TEVA ITALIA , UNIT DOSE : 15 MG
     Dates: start: 20221017, end: 20221017
  2. KETOPROFEN LYSINE [Concomitant]
     Active Substance: KETOPROFEN LYSINE
     Indication: Analgesic intervention supportive therapy

REACTIONS (6)
  - Hypotension [Recovering/Resolving]
  - Urinary incontinence [Recovering/Resolving]
  - Loss of consciousness [Recovered/Resolved]
  - Vision blurred [Recovering/Resolving]
  - Hot flush [Recovering/Resolving]
  - Vomiting [Recovered/Resolved]

NARRATIVE: CASE EVENT DATE: 20221017
